FAERS Safety Report 9223149 (Version 2)
Quarter: 2013Q3

REPORT INFORMATION
  Report Type: Report from Study
  Country: AU (occurrence: AU)
  Receive Date: 20130410
  Receipt Date: 20130717
  Transmission Date: 20140515
  Serious: Yes (Death, Other)
  Sender: FDA-Public Use
  Company Number: PHHY2013AU034740

PATIENT
  Age: 89 Year
  Sex: Female

DRUGS (21)
  1. ACLASTA [Suspect]
     Dosage: 5 MG, UNK
     Route: 042
     Dates: start: 20100506
  2. ACLASTA [Suspect]
     Dosage: 5 MG, UNK
     Route: 042
     Dates: start: 20110504
  3. ACLASTA [Suspect]
     Dosage: 5 MG, UNK
     Route: 042
     Dates: start: 20120524
  4. PANAMAX [Concomitant]
     Dosage: 2 DF, Q4H
  5. NITRO-DUR [Concomitant]
     Dosage: 1 DF, UNK
  6. OSTELIN VITAMIN D [Concomitant]
     Dosage: 2 DF,DAILY
  7. NITROLINGUAL-SPRAY N [Concomitant]
     Route: 060
  8. NEO B 12 [Concomitant]
     Dosage: 1 DF, UNK
  9. CELESTONE M [Concomitant]
     Dosage: 0.2 MG/G, QID
  10. STEMETIL [Concomitant]
     Dosage: 1 DF, Q8H
  11. FRUSEMIDE [Concomitant]
     Dosage: 1 DF, IN MORNING
  12. PRAMIN [Concomitant]
     Dosage: 1 DF, TID
  13. MIRTAZON [Concomitant]
     Dosage: 1 DF, AT NIGHT
  14. SPIRONOLACTONE [Concomitant]
     Dosage: 12 DF, IN MORNING
  15. ASTRIX [Concomitant]
     Dosage: UNK DAILY
  16. NEXUM [Concomitant]
     Dosage: 1 DF, IN MORNING
  17. NITRO 50 [Concomitant]
     Dosage: 10 MG / 24 HOURS
  18. DOCUSATE SODIUM\SENNOSIDES [Concomitant]
     Dosage: 2 DF, IN MORNING
  19. CIRCADIN [Concomitant]
     Dosage: 2 MG, UNK
  20. SYSTANE [Concomitant]
     Dosage: UNK UKN, UNK
  21. GAVISCON [Concomitant]

REACTIONS (5)
  - Mitral valve incompetence [Fatal]
  - Hypertension [Fatal]
  - Cardiac failure congestive [Fatal]
  - Acute myocardial infarction [Unknown]
  - Dyspnoea [Unknown]
